FAERS Safety Report 9607642 (Version 1)
Quarter: 2013Q4

REPORT INFORMATION
  Report Type: Spontaneous
  Country: US (occurrence: US)
  Receive Date: 20131009
  Receipt Date: 20131009
  Transmission Date: 20140711
  Serious: No
  Sender: FDA-Public Use
  Company Number: US-009507513-1310USA003335

PATIENT
  Age: 82 Year
  Sex: Female

DRUGS (9)
  1. JANUVIA [Suspect]
     Indication: TYPE 2 DIABETES MELLITUS
     Dosage: 50 MG, QD
     Route: 048
     Dates: start: 2012
  2. JANUVIA [Suspect]
     Dosage: 25 MG, QD
     Route: 048
  3. ACCUPRIL [Concomitant]
  4. AMARYL [Concomitant]
  5. LASIX (FUROSEMIDE) [Concomitant]
  6. LOVASTATIN [Concomitant]
  7. TOPROL XL TABLETS [Concomitant]
  8. POTASSIUM CHLORIDE - USP [Concomitant]
  9. SYNTHROID [Concomitant]

REACTIONS (1)
  - Renal disorder [Not Recovered/Not Resolved]
